FAERS Safety Report 4600682-5 (Version None)
Quarter: 2005Q1

REPORT INFORMATION
  Report Type: 
  Country: None (occurrence: None)
  Receive Date: 20050301
  Receipt Date: 20050214
  Transmission Date: 20050727
  Serious: Yes (Hospitalization)
  Sender: FDA-Public Use
  Company Number: CART-10391

PATIENT
  Sex: Male

DRUGS (1)
  1. CARTICEL [Suspect]
     Indication: ARTHROPATHY
     Dosage: 1 NA ONCE IS
     Route: 035
     Dates: start: 20010522, end: 20010522

REACTIONS (6)
  - ARTHROPATHY [None]
  - CHONDROMALACIA [None]
  - GRAFT COMPLICATION [None]
  - MENISCUS LESION [None]
  - SCAR [None]
  - SYNOVITIS [None]
